FAERS Safety Report 6642363-2 (Version None)
Quarter: 2010Q1

REPORT INFORMATION
  Report Type: 
  Country: None (occurrence: None)
  Receive Date: 20100316
  Receipt Date: 20100303
  Transmission Date: 20100710
  Serious: Yes (Death)
  Sender: FDA-Public Use
  Company Number: 2010SP000727

PATIENT
  Age: 75 Year
  Sex: Male

DRUGS (9)
  1. XOPENEX [Suspect]
     Indication: DYSPNOEA
     Dosage: PRN; INHALATION
     Route: 055
     Dates: start: 20070101
  2. XOPENEX HFA [Suspect]
     Indication: DYSPNOEA
     Dosage: INHALATION
     Route: 055
     Dates: start: 20070101
  3. LIPITOR [Concomitant]
  4. COZAAR [Concomitant]
  5. NORVASC [Concomitant]
  6. COREG [Concomitant]
  7. LASIX [Concomitant]
  8. EXELON [Concomitant]
  9. ZOLOFT /01011402/ [Concomitant]

REACTIONS (3)
  - DIALYSIS [None]
  - LUNG NEOPLASM MALIGNANT [None]
  - RENAL FAILURE [None]
